FAERS Safety Report 9586808 (Version 1)
Quarter: 2013Q4

REPORT INFORMATION
  Report Type: Spontaneous
  Country: ES (occurrence: ES)
  Receive Date: 20131003
  Receipt Date: 20131003
  Transmission Date: 20140711
  Serious: Yes (Hospitalization, Other)
  Sender: FDA-Public Use
  Company Number: ES-009507513-1309ESP012904

PATIENT
  Age: 31 Year
  Sex: Male

DRUGS (5)
  1. NANDROLONE DECANOATE [Suspect]
     Dosage: 50 MG, QW
     Route: 065
  2. NALTREXONE [Suspect]
     Dosage: 25 MG, Q24H
  3. STANOZOLOL [Suspect]
     Dosage: 100 MG, QW
  4. TESTOSTERONE PROPIONATE [Suspect]
     Dosage: 250 MG, QW
  5. CLENBUTEROL [Suspect]
     Dosage: 20-24 MG, Q24H

REACTIONS (1)
  - Ischaemic stroke [Recovering/Resolving]
